FAERS Safety Report 13875638 (Version 1)
Quarter: 2017Q3

REPORT INFORMATION
  Report Type: Spontaneous
  Country: CZ (occurrence: CZ)
  Receive Date: 20170817
  Receipt Date: 20170817
  Transmission Date: 20171127
  Serious: Yes (Death, Other)
  Sender: FDA-Public Use
  Company Number: CZ-SUN PHARMACEUTICAL INDUSTRIES LTD-2017R1-147737

PATIENT
  Age: 77 Year
  Sex: Male

DRUGS (4)
  1. AZATHIOPRINE. [Suspect]
     Active Substance: AZATHIOPRINE
     Indication: ANTI-NEUTROPHIL CYTOPLASMIC ANTIBODY POSITIVE VASCULITIS
     Dosage: (150-200 MG) DAILY
     Route: 065
     Dates: start: 201504
  2. ACYCLOVIR. [Concomitant]
     Active Substance: ACYCLOVIR
     Indication: HERPES ZOSTER
     Route: 042
  3. PREDNISONE. [Suspect]
     Active Substance: PREDNISONE
     Indication: ANTI-NEUTROPHIL CYTOPLASMIC ANTIBODY POSITIVE VASCULITIS
     Dosage: (15-30 MG) DAILY
     Route: 065
     Dates: start: 201409
  4. ALLOPURINOL. [Concomitant]
     Active Substance: ALLOPURINOL
     Indication: PRODUCT USED FOR UNKNOWN INDICATION
     Dosage: UNK
     Route: 065

REACTIONS (11)
  - Kaposi^s sarcoma [Fatal]
  - Proteinuria [Unknown]
  - Hyperparathyroidism [Unknown]
  - Sepsis [Unknown]
  - Haematuria [Unknown]
  - Nephrolithiasis [Unknown]
  - Pneumonia klebsiella [Unknown]
  - Renal failure [Unknown]
  - Hyperuricaemia [Unknown]
  - Human herpesvirus 8 infection [Unknown]
  - Anaemia [Unknown]

NARRATIVE: CASE EVENT DATE: 201506
